FAERS Safety Report 25239553 (Version 1)
Quarter: 2025Q2

REPORT INFORMATION
  Report Type: Spontaneous
  Country: NL (occurrence: NL)
  Receive Date: 20250425
  Receipt Date: 20250425
  Transmission Date: 20250716
  Serious: Yes (Hospitalization)
  Sender: BOEHRINGER INGELHEIM
  Company Number: None

PATIENT
  Age: 69 Year
  Sex: Female
  Weight: 92 kg

DRUGS (2)
  1. COMBIVENT [Suspect]
     Active Substance: ALBUTEROL SULFATE\IPRATROPIUM BROMIDE
     Indication: Influenza
     Dates: start: 20250302, end: 20250331
  2. COMBIVENT [Suspect]
     Active Substance: ALBUTEROL SULFATE\IPRATROPIUM BROMIDE
     Indication: Pneumonia

REACTIONS (3)
  - Dyspnoea [Recovering/Resolving]
  - Poor quality sleep [Recovering/Resolving]
  - Laryngeal dyskinesia [Recovering/Resolving]
